FAERS Safety Report 9788592 (Version 4)
Quarter: 2014Q1

REPORT INFORMATION
  Report Type: Report from Study
  Country: IL (occurrence: IL)
  Receive Date: 20131230
  Receipt Date: 20140107
  Transmission Date: 20141002
  Serious: Yes (Hospitalization, Disabling)
  Sender: FDA-Public Use
  Company Number: IL-TEVA-449630USA

PATIENT
  Age: 74 Year
  Sex: Female

DRUGS (18)
  1. BENDAMUSTINE [Suspect]
     Indication: CHRONIC LYMPHOCYTIC LEUKAEMIA
     Route: 042
     Dates: start: 20131021
  2. BENDAMUSTINE [Suspect]
     Indication: LYMPHOCYTIC LEUKAEMIA
     Route: 042
     Dates: start: 20131118
  3. RITUXIMAB [Suspect]
     Indication: CHRONIC LYMPHOCYTIC LEUKAEMIA
     Dosage: 31.6667 MILLIGRAM DAILY;
     Route: 042
     Dates: start: 20131020
  4. RITUXIMAB [Suspect]
     Indication: LYMPHOCYTIC LEUKAEMIA
  5. IBRUTINIB [Suspect]
     Indication: CHRONIC LYMPHOCYTIC LEUKAEMIA
     Dosage: 420 MILLIGRAM DAILY;
     Route: 048
     Dates: start: 20131021
  6. IBRUTINIB [Suspect]
     Indication: LYMPHOCYTIC LEUKAEMIA
     Dosage: 420 MILLIGRAM DAILY;
     Route: 048
     Dates: start: 20131123
  7. NOVONORM [Concomitant]
     Indication: DIABETES MELLITUS
     Dosage: 6 MILLIGRAM DAILY;
     Route: 048
  8. ACETYLSALICYLIC ACID [Concomitant]
     Indication: HYPERTENSION
     Dosage: 100 MILLIGRAM DAILY;
     Route: 048
  9. ALENDRONATE SODIUM [Concomitant]
     Indication: OSTEOPOROSIS
     Dosage: 10 MILLIGRAM DAILY;
     Route: 048
  10. AMLODIPINE MALEATE [Concomitant]
     Indication: HYPERTENSION
     Dosage: 5 MILLIGRAM DAILY;
     Route: 048
  11. METFORMIN HYDROCHLORIDE [Concomitant]
     Indication: DIABETES MELLITUS
     Route: 048
  12. LOSARTAN [Concomitant]
     Indication: HYPERTENSION
     Dosage: 50 MILLIGRAM DAILY;
     Route: 048
  13. FEXOFENADINE HYDROCHLORIDE [Concomitant]
     Indication: SEASONAL ALLERGY
     Dosage: 180 MILLIGRAM DAILY;
     Route: 048
  14. FOLIC ACID [Concomitant]
     Indication: IRON DEFICIENCY
     Dosage: 2 DOSAGE FORMS DAILY;
     Route: 048
  15. PARACETAMOL [Concomitant]
     Indication: PREMEDICATION
     Route: 048
     Dates: start: 20131020
  16. PROMETHAZINE [Concomitant]
     Indication: PREMEDICATION
     Route: 042
     Dates: start: 20131021
  17. LORATADINE [Concomitant]
     Route: 048
     Dates: start: 20131020
  18. KYTRIL [Concomitant]
     Dates: start: 20131022

REACTIONS (2)
  - Progressive multifocal leukoencephalopathy [Unknown]
  - Fall [Recovered/Resolved]
